FAERS Safety Report 19711167 (Version 3)
Quarter: 2021Q3

REPORT INFORMATION
  Report Type: Report from Study
  Country: CH (occurrence: CH)
  Receive Date: 20210817
  Receipt Date: 20210917
  Transmission Date: 20211014
  Serious: Yes (Hospitalization, Other)
  Sender: FDA-Public Use
  Company Number: CH-TAKEDA-2021TUS049526

PATIENT
  Age: 76 Year
  Sex: Male
  Weight: 81 kg

DRUGS (69)
  1. PEGYLATED COAGULATION FACTOR VIII [Suspect]
     Active Substance: ANTIHEMOPHILIC FACTOR, PEGYLATED (MW 20000) HUMAN SEQUENCE RECOMBINANT
     Dosage: 2000 DOSAGE FORM, SINGLE
     Route: 042
     Dates: start: 20210510, end: 20210510
  2. PEGYLATED COAGULATION FACTOR VIII [Suspect]
     Active Substance: ANTIHEMOPHILIC FACTOR, PEGYLATED (MW 20000) HUMAN SEQUENCE RECOMBINANT
     Dosage: 2000 DOSAGE FORM, SINGLE
     Route: 042
     Dates: start: 20210513, end: 20210513
  3. PEGYLATED COAGULATION FACTOR VIII [Suspect]
     Active Substance: ANTIHEMOPHILIC FACTOR, PEGYLATED (MW 20000) HUMAN SEQUENCE RECOMBINANT
     Dosage: 2000 DOSAGE FORM, SINGLE
     Route: 042
     Dates: start: 20210524
  4. PEGYLATED COAGULATION FACTOR VIII [Suspect]
     Active Substance: ANTIHEMOPHILIC FACTOR, PEGYLATED (MW 20000) HUMAN SEQUENCE RECOMBINANT
     Dosage: 2000 DOSAGE FORM, SINGLE
     Route: 042
     Dates: start: 20210503
  5. DIAMOX SEQUELS [Concomitant]
     Active Substance: ACETAZOLAMIDE
     Indication: CATARACT OPERATION
     Dosage: 250 MILLIGRAM, BID
     Route: 065
     Dates: start: 20200211, end: 20200211
  6. KCL [Concomitant]
     Active Substance: POTASSIUM CHLORIDE
     Indication: HYPOKALAEMIA
     Dosage: 40 MILLIMOLE, QD
     Route: 065
     Dates: start: 20210512, end: 20210512
  7. PRED FORTE [Concomitant]
     Active Substance: PREDNISOLONE ACETATE
     Indication: CATARACT OPERATION
     Dosage: 1 PERCENT, TID
     Route: 065
     Dates: start: 20200225, end: 20200302
  8. TOBRADEX [Concomitant]
     Active Substance: DEXAMETHASONE\TOBRAMYCIN
     Dosage: 1 APPLICATION, QD
     Route: 065
     Dates: start: 20200225, end: 20200304
  9. LACRI VISION [Concomitant]
     Indication: CATARACT OPERATION
     Dosage: UNK UNK, PRN
     Dates: start: 20200211
  10. PEGYLATED COAGULATION FACTOR VIII [Suspect]
     Active Substance: ANTIHEMOPHILIC FACTOR, PEGYLATED (MW 20000) HUMAN SEQUENCE RECOMBINANT
     Indication: PROPHYLAXIS
     Dosage: 2000 DOSAGE FORM, SINGLE
     Route: 042
     Dates: start: 20210506
  11. PEGYLATED COAGULATION FACTOR VIII [Suspect]
     Active Substance: ANTIHEMOPHILIC FACTOR, PEGYLATED (MW 20000) HUMAN SEQUENCE RECOMBINANT
     Dosage: 2000 DOSAGE FORM, SINGLE
     Route: 042
     Dates: start: 20210517
  12. PEGYLATED COAGULATION FACTOR VIII [Suspect]
     Active Substance: ANTIHEMOPHILIC FACTOR, PEGYLATED (MW 20000) HUMAN SEQUENCE RECOMBINANT
     Dosage: 2000 DOSAGE FORM, SINGLE
     Route: 042
     Dates: start: 20210524
  13. AMLODIPINE [Concomitant]
     Active Substance: AMLODIPINE BESYLATE
     Indication: HYPERTENSION
     Dosage: 10 MILLIGRAM, QD
     Route: 065
     Dates: start: 20210511, end: 20210514
  14. CANDESARTAN. [Concomitant]
     Active Substance: CANDESARTAN
     Indication: HYPERTENSION
     Dosage: 16 MILLIGRAM, BID
     Route: 065
     Dates: start: 20210511, end: 20210514
  15. PRED FORTE [Concomitant]
     Active Substance: PREDNISOLONE ACETATE
     Dosage: 1 PERCENT, BID
     Route: 065
     Dates: start: 20200312, end: 20200319
  16. TRAMAL RETARD [Concomitant]
     Active Substance: TRAMADOL
     Indication: PAIN
     Dosage: 100 MILLIGRAM, BID
     Route: 065
     Dates: start: 20200928, end: 20210101
  17. PEGYLATED COAGULATION FACTOR VIII [Suspect]
     Active Substance: ANTIHEMOPHILIC FACTOR, PEGYLATED (MW 20000) HUMAN SEQUENCE RECOMBINANT
     Dosage: 2000 DOSAGE FORM, SINGLE
     Route: 042
     Dates: start: 20210513, end: 20210513
  18. PEGYLATED COAGULATION FACTOR VIII [Suspect]
     Active Substance: ANTIHEMOPHILIC FACTOR, PEGYLATED (MW 20000) HUMAN SEQUENCE RECOMBINANT
     Dosage: 2000 DOSAGE FORM, SINGLE
     Route: 042
     Dates: start: 20210503
  19. CO?DAFALGAN [Concomitant]
     Active Substance: ACETAMINOPHEN\CODEINE PHOSPHATE
     Indication: HEADACHE
     Dosage: 500 MILLIGRAM, QD
     Route: 065
     Dates: start: 20160321
  20. PRED FORTE [Concomitant]
     Active Substance: PREDNISOLONE ACETATE
     Dosage: 1 PERCENT, QID
     Route: 065
     Dates: start: 20200304, end: 20200311
  21. PRED FORTE [Concomitant]
     Active Substance: PREDNISOLONE ACETATE
     Dosage: 1 PERCENT, QD
     Route: 065
     Dates: start: 20200310, end: 20200316
  22. TARGIN [Concomitant]
     Active Substance: NALOXONE HYDROCHLORIDE\OXYCODONE HYDROCHLORIDE
     Indication: PAIN
     Dosage: 10 MILLIGRAM, PRN
     Route: 065
     Dates: start: 20190506, end: 201909
  23. TOBRADEX [Concomitant]
     Active Substance: DEXAMETHASONE\TOBRAMYCIN
     Dosage: 1 MILLIGRAM, QD
     Route: 065
     Dates: start: 20200211, end: 20200217
  24. PEGYLATED COAGULATION FACTOR VIII [Suspect]
     Active Substance: ANTIHEMOPHILIC FACTOR, PEGYLATED (MW 20000) HUMAN SEQUENCE RECOMBINANT
     Indication: PROPHYLAXIS
     Dosage: 2000 DOSAGE FORM, SINGLE
     Route: 042
     Dates: start: 20210506
  25. PEGYLATED COAGULATION FACTOR VIII [Suspect]
     Active Substance: ANTIHEMOPHILIC FACTOR, PEGYLATED (MW 20000) HUMAN SEQUENCE RECOMBINANT
     Dosage: 2000 DOSAGE FORM, SINGLE
     Route: 042
     Dates: start: 20210510, end: 20210510
  26. PEGYLATED COAGULATION FACTOR VIII [Suspect]
     Active Substance: ANTIHEMOPHILIC FACTOR, PEGYLATED (MW 20000) HUMAN SEQUENCE RECOMBINANT
     Dosage: 2000 DOSAGE FORM, SINGLE
     Route: 042
     Dates: start: 20210513, end: 20210513
  27. PEGYLATED COAGULATION FACTOR VIII [Suspect]
     Active Substance: ANTIHEMOPHILIC FACTOR, PEGYLATED (MW 20000) HUMAN SEQUENCE RECOMBINANT
     Dosage: 2000 DOSAGE FORM, SINGLE
     Route: 042
     Dates: start: 20210517
  28. AMLODIPIN [Concomitant]
     Active Substance: AMLODIPINE BESYLATE
     Dosage: 5 MILLIGRAM, QD
     Route: 065
     Dates: start: 20120314, end: 20150523
  29. DAFALGAN [Concomitant]
     Active Substance: ACETAMINOPHEN
     Indication: HEADACHE
     Dosage: 1 GRAM, PRN
     Route: 065
     Dates: end: 20160321
  30. CYKLOKAPRON [Concomitant]
     Active Substance: TRANEXAMIC ACID
     Indication: EPISTAXIS
     Dosage: 5 PERCENT, PRN
     Route: 065
     Dates: start: 20201008
  31. MIRTAZAPIN [Concomitant]
     Active Substance: MIRTAZAPINE
     Indication: HEADACHE
     Dosage: 30 MILLIGRAM, QD
     Route: 065
     Dates: end: 20191104
  32. PRED FORTE [Concomitant]
     Active Substance: PREDNISOLONE ACETATE
     Dosage: 1 PERCENT, QID
     Route: 065
     Dates: start: 20200218, end: 20200224
  33. TOBRADEX [Concomitant]
     Active Substance: DEXAMETHASONE\TOBRAMYCIN
     Indication: CATARACT OPERATION
     Dosage: 1 MILLIGRAM, 5 TIMES PER DAY
     Route: 047
     Dates: start: 20200211, end: 20200217
  34. TOBRADEX [Concomitant]
     Active Substance: DEXAMETHASONE\TOBRAMYCIN
     Dosage: 1 MILLIGRAM, 5 TIMES PER DAY
     Route: 047
     Dates: start: 20200225, end: 20200304
  35. VASCORD [Concomitant]
     Dosage: UNK UNK, QD
     Route: 065
     Dates: start: 20210515
  36. ZOLPIDEM [Concomitant]
     Active Substance: ZOLPIDEM TARTRATE
     Indication: HEADACHE
     Dosage: 10 MILLIGRAM, QD
     Route: 065
  37. PEGYLATED COAGULATION FACTOR VIII [Suspect]
     Active Substance: ANTIHEMOPHILIC FACTOR, PEGYLATED (MW 20000) HUMAN SEQUENCE RECOMBINANT
     Dosage: 2000 DOSAGE FORM, SINGLE
     Route: 042
     Dates: start: 20210520
  38. PEGYLATED COAGULATION FACTOR VIII [Suspect]
     Active Substance: ANTIHEMOPHILIC FACTOR, PEGYLATED (MW 20000) HUMAN SEQUENCE RECOMBINANT
     Dosage: 2000 DOSAGE FORM, SINGLE
     Route: 042
     Dates: start: 20210429
  39. PEGYLATED COAGULATION FACTOR VIII [Suspect]
     Active Substance: ANTIHEMOPHILIC FACTOR, PEGYLATED (MW 20000) HUMAN SEQUENCE RECOMBINANT
     Dosage: 2000 DOSAGE FORM, SINGLE
     Route: 042
     Dates: start: 20210429
  40. DIAMOX SEQUELS [Concomitant]
     Active Substance: ACETAZOLAMIDE
     Dosage: 250 MILLIGRAM, BID
     Route: 065
     Dates: start: 20200225, end: 20200225
  41. PANTOPRAZOL [Concomitant]
     Active Substance: PANTOPRAZOLE SODIUM
     Indication: ABDOMINAL DISCOMFORT
     Dosage: 40 MILLIGRAM, QD
     Route: 065
     Dates: start: 20210427, end: 20210511
  42. VASCORD [Concomitant]
     Indication: HYPERTENSION
     Dosage: UNK UNK, QD
     Route: 065
     Dates: start: 20191004, end: 20210511
  43. PEGYLATED COAGULATION FACTOR VIII [Suspect]
     Active Substance: ANTIHEMOPHILIC FACTOR, PEGYLATED (MW 20000) HUMAN SEQUENCE RECOMBINANT
     Indication: PROPHYLAXIS
     Dosage: 2000 DOSAGE FORM, SINGLE
     Route: 042
     Dates: start: 20210506
  44. PEGYLATED COAGULATION FACTOR VIII [Suspect]
     Active Substance: ANTIHEMOPHILIC FACTOR, PEGYLATED (MW 20000) HUMAN SEQUENCE RECOMBINANT
     Dosage: 2000 DOSAGE FORM, SINGLE
     Route: 042
     Dates: start: 20210520
  45. PEGYLATED COAGULATION FACTOR VIII [Suspect]
     Active Substance: ANTIHEMOPHILIC FACTOR, PEGYLATED (MW 20000) HUMAN SEQUENCE RECOMBINANT
     Dosage: 2000 DOSAGE FORM, SINGLE
     Route: 042
     Dates: start: 20210520
  46. AMLODIPIN [Concomitant]
     Active Substance: AMLODIPINE BESYLATE
     Indication: HYPERTENSION
     Dosage: 10 MILLIGRAM, PRN
     Route: 065
     Dates: start: 20210515
  47. CARVEDILOL. [Concomitant]
     Active Substance: CARVEDILOL
     Indication: HYPERTENSION
     Dosage: 50 MILLIGRAM, QD
     Route: 065
     Dates: end: 20210302
  48. DULCOLAX NOS [Concomitant]
     Active Substance: BISACODYL OR DOCUSATE SODIUM
     Indication: CONSTIPATION
     Dosage: UNK UNK, PRN
     Route: 065
     Dates: start: 2020
  49. KALIUM HAUSMANN EFFERVETTES [Concomitant]
     Indication: HYPOKALAEMIA
     Dosage: 30 MILLIMOLE, BID
     Route: 065
     Dates: start: 20210512, end: 20210517
  50. KALIUM EFFERVESCENS BEZCUKROWY [Concomitant]
     Active Substance: POTASSIUM BICARBONATE\POTASSIUM CITRATE
     Indication: HYPOKALAEMIA
     Dosage: 30 MILLIMOLE, QD
     Route: 065
     Dates: start: 20150812, end: 20150812
  51. PRED FORTE [Concomitant]
     Active Substance: PREDNISOLONE ACETATE
     Dosage: 1 PERCENT, QD
     Route: 065
     Dates: start: 20200320, end: 20200327
  52. VASCORD HCT [Concomitant]
     Active Substance: AMLODIPINE BESYLATE\HYDROCHLOROTHIAZIDE\OLMESARTAN MEDOXOMIL
     Indication: HYPERTENSION
     Dosage: 40 MILLIGRAM, QD
     Route: 065
     Dates: start: 20190204, end: 20191104
  53. PEGYLATED COAGULATION FACTOR VIII [Suspect]
     Active Substance: ANTIHEMOPHILIC FACTOR, PEGYLATED (MW 20000) HUMAN SEQUENCE RECOMBINANT
     Dosage: 2000 DOSAGE FORM, SINGLE
     Route: 042
     Dates: start: 20210510, end: 20210510
  54. PEGYLATED COAGULATION FACTOR VIII [Suspect]
     Active Substance: ANTIHEMOPHILIC FACTOR, PEGYLATED (MW 20000) HUMAN SEQUENCE RECOMBINANT
     Dosage: 2000 DOSAGE FORM, SINGLE
     Route: 042
     Dates: start: 20210517
  55. PEGYLATED COAGULATION FACTOR VIII [Suspect]
     Active Substance: ANTIHEMOPHILIC FACTOR, PEGYLATED (MW 20000) HUMAN SEQUENCE RECOMBINANT
     Dosage: 2000 DOSAGE FORM, SINGLE
     Route: 042
     Dates: start: 20210524
  56. PEGYLATED COAGULATION FACTOR VIII [Suspect]
     Active Substance: ANTIHEMOPHILIC FACTOR, PEGYLATED (MW 20000) HUMAN SEQUENCE RECOMBINANT
     Dosage: 2000 DOSAGE FORM, SINGLE
     Route: 042
     Dates: start: 20210429
  57. PEGYLATED COAGULATION FACTOR VIII [Suspect]
     Active Substance: ANTIHEMOPHILIC FACTOR, PEGYLATED (MW 20000) HUMAN SEQUENCE RECOMBINANT
     Dosage: 2000 DOSAGE FORM, SINGLE
     Route: 042
     Dates: start: 20210503
  58. CANDESARTAN SANDOZ [Concomitant]
     Active Substance: CANDESARTAN
     Indication: HYPERTENSION
     Dosage: 32 MILLIGRAM, QD
     Route: 065
     Dates: start: 20200317, end: 20200322
  59. MEDROL [Concomitant]
     Active Substance: METHYLPREDNISOLONE
     Indication: ARTHROPATHY
     Dosage: UNK
     Route: 050
     Dates: start: 20171025, end: 20171025
  60. NEXIUM [Concomitant]
     Active Substance: ESOMEPRAZOLE MAGNESIUM
     Indication: ABDOMINAL DISCOMFORT
     Dosage: 40 MILLIGRAM, BID
     Route: 065
     Dates: end: 202003
  61. REMERON [Concomitant]
     Active Substance: MIRTAZAPINE
     Indication: HEADACHE
     Dosage: 7.5 MILLIGRAM, QD
     Route: 065
     Dates: start: 20161130
  62. YELLOX [Concomitant]
     Active Substance: BROMFENAC SODIUM
     Indication: CATARACT OPERATION
     Dosage: 0.9 MILLIGRAM, BID
     Route: 065
     Dates: start: 20200211, end: 20200224
  63. YELLOX [Concomitant]
     Active Substance: BROMFENAC SODIUM
     Dosage: 0.9 MILLIGRAM, BID
     Route: 065
     Dates: start: 20200225, end: 20200308
  64. PEGYLATED COAGULATION FACTOR VIII [Suspect]
     Active Substance: ANTIHEMOPHILIC FACTOR, PEGYLATED (MW 20000) HUMAN SEQUENCE RECOMBINANT
     Dosage: 2000 DOSAGE FORM, SINGLE
     Route: 042
     Dates: start: 20210510, end: 20210510
  65. PEGYLATED COAGULATION FACTOR VIII [Suspect]
     Active Substance: ANTIHEMOPHILIC FACTOR, PEGYLATED (MW 20000) HUMAN SEQUENCE RECOMBINANT
     Dosage: 2000 DOSAGE FORM, SINGLE
     Route: 042
     Dates: start: 20210510, end: 20210510
  66. PEGYLATED COAGULATION FACTOR VIII [Suspect]
     Active Substance: ANTIHEMOPHILIC FACTOR, PEGYLATED (MW 20000) HUMAN SEQUENCE RECOMBINANT
     Dosage: 2000 DOSAGE FORM, SINGLE
     Route: 042
     Dates: start: 20210510, end: 20210510
  67. ENATEC [Concomitant]
     Active Substance: ENALAPRIL MALEATE
     Indication: HYPERTENSION
     Dosage: 25 MILLIGRAM, BID
     Route: 065
     Dates: end: 20150323
  68. PRED FORTE [Concomitant]
     Active Substance: PREDNISOLONE ACETATE
     Dosage: 1 PERCENT, BID
     Route: 065
     Dates: start: 20200303, end: 20200309
  69. ROPIVACAINE. [Concomitant]
     Active Substance: ROPIVACAINE HYDROCHLORIDE
     Indication: ARTHROPATHY
     Dosage: UNK
     Route: 050
     Dates: start: 20171025, end: 20171025

REACTIONS (5)
  - Arthritis infective [Recovered/Resolved]
  - Spontaneous haemorrhage [Recovered/Resolved]
  - Haemarthrosis [Unknown]
  - Device related infection [Recovered/Resolved]
  - Hypokalaemia [Recovered/Resolved]

NARRATIVE: CASE EVENT DATE: 20210510
